FAERS Safety Report 21346577 (Version 1)
Quarter: 2022Q3

REPORT INFORMATION
  Report Type: Spontaneous
  Country: US (occurrence: US)
  Receive Date: 20220917
  Receipt Date: 20220917
  Transmission Date: 20221027
  Serious: Yes (Other)
  Sender: FDA-Public Use
  Company Number: US-AMGEN-USASP2022157041

PATIENT
  Age: 75 Year
  Sex: Female

DRUGS (4)
  1. EPOETIN ALFA [Suspect]
     Active Substance: ERYTHROPOIETIN
     Indication: Haemolytic anaemia
     Route: 065
  2. FOLIC ACID [Concomitant]
     Active Substance: FOLIC ACID
     Indication: Anaemia
  3. WARFARIN SODIUM [Concomitant]
     Active Substance: WARFARIN SODIUM
     Indication: Prosthetic cardiac valve failure
  4. ASPIRIN [Concomitant]
     Active Substance: ASPIRIN
     Indication: Prosthetic cardiac valve failure
     Dosage: 81 MILLIGRAM

REACTIONS (4)
  - Haemolysis [Unknown]
  - Drug effective for unapproved indication [Unknown]
  - Off label use [Unknown]
  - Blood lactate dehydrogenase increased [Unknown]
